FAERS Safety Report 10572144 (Version 1)
Quarter: 2014Q4

REPORT INFORMATION
  Report Type: Spontaneous
  Country: DK (occurrence: DK)
  Receive Date: 20141107
  Receipt Date: 20141107
  Transmission Date: 20150529
  Serious: Yes (Hospitalization, Other)
  Sender: FDA-Public Use
  Company Number: DK-ROXANE LABORATORIES, INC.-2014-RO-01670RO

PATIENT
  Age: 33 Year
  Sex: Male

DRUGS (2)
  1. AZATHIOPRINE. [Suspect]
     Active Substance: AZATHIOPRINE
     Indication: CROHN^S DISEASE
     Dosage: 150 MG
     Route: 065
  2. PREDNISONE. [Suspect]
     Active Substance: PREDNISONE
     Indication: CROHN^S DISEASE
     Route: 065
     Dates: start: 2013

REACTIONS (4)
  - Colitis [Unknown]
  - Mallory-Weiss syndrome [None]
  - Epstein-Barr viraemia [Unknown]
  - Central nervous system lymphoma [Recovered/Resolved]

NARRATIVE: CASE EVENT DATE: 2013
